FAERS Safety Report 24423227 (Version 1)
Quarter: 2024Q4

REPORT INFORMATION
  Report Type: Report from Study
  Country: US (occurrence: US)
  Receive Date: 20241010
  Receipt Date: 20241010
  Transmission Date: 20250115
  Serious: Yes (Hospitalization)
  Sender: EISAI
  Company Number: US-Eisai-EC-2024-174519

PATIENT
  Age: 52 Year
  Sex: Female

DRUGS (1)
  1. LENVIMA [Suspect]
     Active Substance: LENVATINIB
     Indication: Renal cancer
     Dosage: THE PATIENT MISSED DOSE#1 AND 15# DUE TO TRANSITION TO THE FACILITY WHERE THE STAFF FORGOT TO GIVE T
     Route: 048

REACTIONS (5)
  - Fatigue [Recovering/Resolving]
  - Stomatitis [Recovering/Resolving]
  - Glossodynia [Recovering/Resolving]
  - Off label use [Recovering/Resolving]
  - Somnolence [Recovering/Resolving]

NARRATIVE: CASE EVENT DATE: 20240901
